FAERS Safety Report 10606832 (Version 1)
Quarter: 2014Q4

REPORT INFORMATION
  Report Type: Report from Study
  Country: ES (occurrence: ES)
  Receive Date: 20141125
  Receipt Date: 20141125
  Transmission Date: 20150529
  Serious: Yes (Hospitalization)
  Sender: FDA-Public Use
  Company Number: ES-SA-2014SA158372

PATIENT
  Age: 57 Year
  Sex: Female

DRUGS (2)
  1. ISONIAZID/PYRAZINAMIDE/RIFAMPICIN [Suspect]
     Active Substance: ISONIAZID\PYRAZINAMIDE\RIFAMPIN
     Indication: TUBERCULOSIS
     Dosage: 5 COMP. 1 VEZ AL DIA
     Route: 048
     Dates: start: 20130110
  2. MYAMBUTOL [Suspect]
     Active Substance: ETHAMBUTOL HYDROCHLORIDE
     Indication: TUBERCULOSIS
     Dosage: 400MG 1 VEZ AL DIA
     Route: 048
     Dates: start: 20130110

REACTIONS (2)
  - Rash [Recovering/Resolving]
  - Dyspnoea [Recovered/Resolved]

NARRATIVE: CASE EVENT DATE: 20130110
